FAERS Safety Report 4766648-X (Version None)
Quarter: 2005Q3

REPORT INFORMATION
  Report Type: 
  Country: None (occurrence: None)
  Receive Date: 20050912
  Receipt Date: 20050824
  Transmission Date: 20060218
  Serious: Yes (Other)
  Sender: FDA-Public Use
  Company Number: 2005BI014569

PATIENT
  Age: 46 Year
  Sex: Male
  Weight: 62.5964 kg

DRUGS (14)
  1. AVONEX [Suspect]
     Indication: MULTIPLE SCLEROSIS
     Dosage: 30 UG; QW; IM
     Route: 030
  2. AVONEX [Suspect]
     Indication: MULTIPLE SCLEROSIS
     Dosage: 30 UG; QW; IM
     Route: 030
     Dates: start: 20020101
  3. WELLBUTRIN [Concomitant]
  4. MILK THISTLE [Concomitant]
  5. MULTI-VITAMIN [Concomitant]
  6. VALIUM [Concomitant]
  7. METHADONE HCL [Concomitant]
  8. ZOLOFT [Concomitant]
  9. VICODIN ES [Concomitant]
  10. GINKO BILOBA [Concomitant]
  11. SILYMARIN [Concomitant]
  12. ESTER C [Concomitant]
  13. GARLIC [Concomitant]
  14. PARSLEY [Concomitant]

REACTIONS (13)
  - ATROPHY [None]
  - CARDIAC MURMUR [None]
  - CONDITION AGGRAVATED [None]
  - GAIT DISTURBANCE [None]
  - HEADACHE [None]
  - INTRACRANIAL ANEURYSM [None]
  - MULTIPLE SCLEROSIS [None]
  - NIGHT SWEATS [None]
  - PAROSMIA [None]
  - POLLAKIURIA [None]
  - TINNITUS [None]
  - URINARY INCONTINENCE [None]
  - WEIGHT DECREASED [None]
